FAERS Safety Report 4913610-X (Version None)
Quarter: 2006Q1

REPORT INFORMATION
  Report Type: 
  Country: None (occurrence: None)
  Receive Date: 20060214
  Receipt Date: 20060214
  Transmission Date: 20060701
  Serious: Yes (Other)
  Sender: FDA-Public Use
  Company Number: None

PATIENT
  Age: 50 Year
  Sex: Female
  Weight: 53.0709 kg

DRUGS (1)
  1. BOTOX COSMETIC [Suspect]
     Indication: SKIN COSMETIC PROCEDURE
     Dosage: ONCE
     Dates: start: 20060124, end: 20060124

REACTIONS (15)
  - ARTHRALGIA [None]
  - BREAST PAIN [None]
  - BREAST SWELLING [None]
  - DEPRESSION [None]
  - DRUG TOXICITY [None]
  - FATIGUE [None]
  - FLUID RETENTION [None]
  - HEADACHE [None]
  - INFLUENZA LIKE ILLNESS [None]
  - JOINT STIFFNESS [None]
  - JOINT SWELLING [None]
  - MUSCLE TIGHTNESS [None]
  - MYALGIA [None]
  - NECK PAIN [None]
  - PAIN [None]
